FAERS Safety Report 23345414 (Version 1)
Quarter: 2023Q4

REPORT INFORMATION
  Report Type: Spontaneous
  Country: US (occurrence: US)
  Receive Date: 20231228
  Receipt Date: 20231228
  Transmission Date: 20240109
  Serious: No
  Sender: FDA-Public Use
  Company Number: US-CIPLA LTD.-2023US07859

PATIENT

DRUGS (1)
  1. LENALIDOMIDE [Suspect]
     Active Substance: LENALIDOMIDE
     Indication: Plasma cell myeloma
     Dosage: 5 MILLIGRAM (1 CAPSULE), QD FOR 21 DAYS ON THEN 7 DAYS OFF
     Route: 065

REACTIONS (2)
  - Skin exfoliation [Unknown]
  - Pruritus [Unknown]
